FAERS Safety Report 9269703 (Version 1)
Quarter: 2013Q2

REPORT INFORMATION
  Report Type: Spontaneous
  Country: CA (occurrence: CA)
  Receive Date: 20130503
  Receipt Date: 20130503
  Transmission Date: 20140414
  Serious: Yes (Other)
  Sender: FDA-Public Use
  Company Number: CA-BRISTOL-MYERS SQUIBB COMPANY-18827709

PATIENT
  Sex: Female

DRUGS (1)
  1. ONGLYZA TABS 5 MG [Suspect]
     Indication: DIABETES MELLITUS

REACTIONS (1)
  - Tubulointerstitial nephritis [Recovered/Resolved]
